FAERS Safety Report 19900267 (Version 1)
Quarter: 2021Q3

REPORT INFORMATION
  Report Type: Spontaneous
  Country: IS (occurrence: IS)
  Receive Date: 20210930
  Receipt Date: 20210930
  Transmission Date: 20211014
  Serious: Yes (Other)
  Sender: FDA-Public Use
  Company Number: IS-JNJFOC-20210938655

PATIENT
  Sex: Female

DRUGS (5)
  1. SPRAVATO [Suspect]
     Active Substance: ESKETAMINE
     Indication: DEPRESSION
     Dates: start: 2021
  2. SPRAVATO [Suspect]
     Active Substance: ESKETAMINE
     Dates: start: 2021
  3. SPRAVATO [Suspect]
     Active Substance: ESKETAMINE
     Dates: start: 2021
  4. SPRAVATO [Suspect]
     Active Substance: ESKETAMINE
     Dates: start: 2021
  5. SPRAVATO [Suspect]
     Active Substance: ESKETAMINE
     Dates: start: 2021

REACTIONS (2)
  - Depression [Unknown]
  - Suicide attempt [Unknown]
